FAERS Safety Report 4361425-6 (Version None)
Quarter: 2004Q2

REPORT INFORMATION
  Report Type: 
  Country: None (occurrence: None)
  Receive Date: 20040517
  Receipt Date: 20040503
  Transmission Date: 20050107
  Serious: Yes (Other)
  Sender: FDA-Public Use
  Company Number: S04-USA-02091-01

PATIENT

DRUGS (3)
  1. NAMENDA [Suspect]
  2. NAMENDA [Suspect]
  3. NAMENDA [Suspect]

REACTIONS (2)
  - DRUG INTERACTION [None]
  - ELECTROCARDIOGRAM QT CORRECTED INTERVAL PROLONGED [None]
